FAERS Safety Report 18890421 (Version 3)
Quarter: 2021Q2

REPORT INFORMATION
  Report Type: Spontaneous
  Country: CH (occurrence: CH)
  Receive Date: 20210214
  Receipt Date: 20210513
  Transmission Date: 20210717
  Serious: Yes (Other)
  Sender: FDA-Public Use
  Company Number: CH-ELI_LILLY_AND_COMPANY-CH202102002781

PATIENT
  Sex: Female

DRUGS (3)
  1. VERZENIOS 150MG [Suspect]
     Active Substance: ABEMACICLIB
     Dosage: 100 MG, BID
     Route: 065
  2. VERZENIOS 150MG [Suspect]
     Active Substance: ABEMACICLIB
     Indication: HORMONE RECEPTOR POSITIVE HER2 NEGATIVE BREAST CANCER
     Dosage: 150 MG, BID
     Route: 065
     Dates: start: 202010
  3. LETROZOLE. [Concomitant]
     Active Substance: LETROZOLE
     Indication: HORMONE RECEPTOR POSITIVE HER2 NEGATIVE BREAST CANCER
     Dosage: 2.5 MG, DAILY
     Route: 065

REACTIONS (5)
  - Oesophageal ulcer [Unknown]
  - Nausea [Unknown]
  - Fatigue [Unknown]
  - Oesophageal stenosis [Unknown]
  - Dysphagia [Recovering/Resolving]

NARRATIVE: CASE EVENT DATE: 202012
